FAERS Safety Report 4895200-0 (Version None)
Quarter: 2006Q1

REPORT INFORMATION
  Report Type: 
  Country: None (occurrence: None)
  Receive Date: 20060125
  Receipt Date: 20060109
  Transmission Date: 20060701
  Serious: Yes (Life-Threatening)
  Sender: FDA-Public Use
  Company Number: 2006BI000523

PATIENT
  Age: 47 Year
  Sex: Male
  Weight: 86 kg

DRUGS (16)
  1. ZEVALIN [Suspect]
     Indication: B-CELL LYMPHOMA
     Dosage: 1X; IV
     Route: 042
     Dates: start: 20050630, end: 20050630
  2. ZEVALIN [Suspect]
     Indication: B-CELL LYMPHOMA
     Dosage: 1290 MBQ; 1X; IV
     Route: 042
     Dates: start: 20050706, end: 20050706
  3. RITUXIMAB [Concomitant]
  4. ACYCLOVIR [Concomitant]
  5. CASPOFUNGIN [Concomitant]
  6. AMPHOTERICIN B [Concomitant]
  7. HEPARIN [Concomitant]
  8. PANTOPRAZOLE [Concomitant]
  9. MORPHINE [Concomitant]
  10. NEPOFAM [Concomitant]
  11. RITUXIMAB [Concomitant]
  12. BCNU [Concomitant]
  13. VEPESID [Concomitant]
  14. CYTARABINE [Concomitant]
  15. MELPHALAN [Concomitant]
  16. FILGRASTIM [Concomitant]

REACTIONS (7)
  - ACINETOBACTER BACTERAEMIA [None]
  - HAEMATOTOXICITY [None]
  - HAEMOGLOBIN DECREASED [None]
  - PLATELET COUNT DECREASED [None]
  - SEPSIS [None]
  - STEM CELL TRANSPLANT [None]
  - WHITE BLOOD CELL COUNT DECREASED [None]
